FAERS Safety Report 26007074 (Version 1)
Quarter: 2025Q4

REPORT INFORMATION
  Report Type: Report from Study
  Country: IL (occurrence: IL)
  Receive Date: 20251106
  Receipt Date: 20251106
  Transmission Date: 20260118
  Serious: Yes (Other)
  Sender: CSL BEHRING
  Company Number: IL-BEH-2025224645

PATIENT

DRUGS (1)
  1. HUMAN IMMUNOGLOBULIN G [Suspect]
     Active Substance: HUMAN IMMUNOGLOBULIN G
     Indication: Neonatal alloimmune thrombocytopenia
     Dosage: QW
     Route: 064

REACTIONS (4)
  - Thrombocytopenia neonatal [Unknown]
  - Petechiae [Unknown]
  - Foetal exposure during pregnancy [Unknown]
  - Off label use [Unknown]
